FAERS Safety Report 5690478-8 (Version None)
Quarter: 2008Q2

REPORT INFORMATION
  Report Type: 
  Country: None (occurrence: None)
  Receive Date: 20080401
  Receipt Date: 20080325
  Transmission Date: 20081010
  Serious: Yes (Hospitalization)
  Sender: FDA-Public Use
  Company Number: JP-ASTRAZENECA-2008AP02176

PATIENT
  Age: 69 Year
  Sex: Male

DRUGS (2)
  1. IRESSA [Suspect]
     Indication: NON-SMALL CELL LUNG CANCER
     Route: 048
     Dates: start: 20080212, end: 20080314
  2. IRESSA [Suspect]
     Route: 048
     Dates: start: 20080316, end: 20080316

REACTIONS (1)
  - BLOOD CREATININE INCREASED [None]
